FAERS Safety Report 11185425 (Version 3)
Quarter: 2015Q3

REPORT INFORMATION
  Report Type: Spontaneous
  Country: US (occurrence: US)
  Receive Date: 20150612
  Receipt Date: 20150812
  Transmission Date: 20151125
  Serious: Yes (Life-Threatening, Hospitalization, Disabling, Other)
  Sender: FDA-Public Use
  Company Number: US-009507513-1506USA004200

PATIENT
  Age: 71 Year
  Sex: Male
  Weight: 66.67 kg

DRUGS (17)
  1. ATORVASTATIN [Concomitant]
     Active Substance: ATORVASTATIN
  2. HUMALOG [Concomitant]
     Active Substance: INSULIN LISPRO
     Dosage: HUMALOG KWIKPEN
  3. DIGOXIN. [Concomitant]
     Active Substance: DIGOXIN
  4. BRILINTA [Concomitant]
     Active Substance: TICAGRELOR
  5. ASPIRIN. [Concomitant]
     Active Substance: ASPIRIN
  6. ROBITUSSIN DM SUGAR FREE [Concomitant]
     Indication: COUGH
  7. LISINOPRIL. [Concomitant]
     Active Substance: LISINOPRIL
  8. LANTUS [Concomitant]
     Active Substance: INSULIN GLARGINE
     Dosage: 100 UNITS, UNK
     Dates: start: 20130312, end: 201407
  9. METFORMIN [Suspect]
     Active Substance: METFORMIN HYDROCHLORIDE
     Dosage: 1 TABLET (1000 MG) DAILY
     Route: 048
     Dates: start: 2010, end: 201301
  10. METOPROLOL [Concomitant]
     Active Substance: METOPROLOL
  11. IBUPROFEN. [Concomitant]
     Active Substance: IBUPROFEN
     Dosage: 200 MG, PRN
  12. VENTOLIN [Concomitant]
     Active Substance: ALBUTEROL SULFATE
     Dosage: VENTOLIN INHALER
     Route: 055
  13. DILTIAZEM HYDROCHLORIDE EXTENDED RELEASE [Concomitant]
     Active Substance: DILTIAZEM HYDROCHLORIDE
     Dosage: UNK
     Route: 048
     Dates: end: 201408
  14. JANUVIA [Suspect]
     Active Substance: SITAGLIPTIN PHOSPHATE
     Indication: DIABETES MELLITUS
     Dosage: 100 MG, QD
     Route: 048
     Dates: start: 2010, end: 2013
  15. INVOKANA [Suspect]
     Active Substance: CANAGLIFLOZIN
     Dosage: STRENGTH: 300/100/300 MG
     Route: 048
     Dates: start: 201405, end: 201408
  16. INSULIN [Concomitant]
     Active Substance: INSULIN NOS
  17. GLIPIZIDE. [Concomitant]
     Active Substance: GLIPIZIDE
     Dosage: 10 MG, UNK
     Route: 048
     Dates: end: 201408

REACTIONS (6)
  - Myocardial infarction [Not Recovered/Not Resolved]
  - Platelet count decreased [Unknown]
  - Pancreatitis acute [Unknown]
  - Hepatic cirrhosis [Unknown]
  - Chest pain [Unknown]
  - Abdominal pain upper [Not Recovered/Not Resolved]
